FAERS Safety Report 13534696 (Version 2)
Quarter: 2017Q2

REPORT INFORMATION
  Report Type: Report from Study
  Country: US (occurrence: US)
  Receive Date: 20170511
  Receipt Date: 20170528
  Transmission Date: 20170830
  Serious: Yes (Other)
  Sender: FDA-Public Use
  Company Number: US-BIOGEN-2014BI119423

PATIENT
  Age: 72 Year
  Sex: Female

DRUGS (4)
  1. ATENOLOL. [Concomitant]
     Active Substance: ATENOLOL
     Indication: PRODUCT USED FOR UNKNOWN INDICATION
     Route: 048
  2. LISINOPRIL. [Concomitant]
     Active Substance: LISINOPRIL
     Indication: PRODUCT USED FOR UNKNOWN INDICATION
     Route: 048
  3. IBUPROFEN. [Concomitant]
     Active Substance: IBUPROFEN
     Indication: PRODUCT USED FOR UNKNOWN INDICATION
     Dosage: AS NEEDED EVERY 6 HRS FOR PAIN
     Route: 048
  4. AVONEX [Suspect]
     Active Substance: INTERFERON BETA-1A
     Indication: MULTIPLE SCLEROSIS
     Route: 030
     Dates: start: 20120810, end: 20170324

REACTIONS (9)
  - Human anaplasmosis [Recovered/Resolved]
  - Arthropod bite [Not Recovered/Not Resolved]
  - Acute respiratory failure [Recovered/Resolved]
  - Sepsis [Recovered/Resolved]
  - Adverse drug reaction [Not Recovered/Not Resolved]
  - Abdominal adhesions [Unknown]
  - Acute prerenal failure [Recovered/Resolved]
  - Surgery [Unknown]
  - Central nervous system lesion [Unknown]

NARRATIVE: CASE EVENT DATE: 2012
